FAERS Safety Report 4766837-4 (Version None)
Quarter: 2005Q3

REPORT INFORMATION
  Report Type: 
  Country: None (occurrence: None)
  Receive Date: 20050912
  Receipt Date: 20050829
  Transmission Date: 20060218
  Serious: Yes (Hospitalization)
  Sender: FDA-Public Use
  Company Number: 2005121161

PATIENT
  Sex: Female

DRUGS (2)
  1. NEURONTIN [Suspect]
     Indication: BIPOLAR DISORDER
  2. TYLENOL [Suspect]
     Indication: ILL-DEFINED DISORDER

REACTIONS (7)
  - ABNORMAL BEHAVIOUR [None]
  - DIVORCED [None]
  - DRUG INEFFECTIVE [None]
  - INTENTIONAL SELF-INJURY [None]
  - OVERDOSE [None]
  - PARENT-CHILD PROBLEM [None]
  - SUICIDE ATTEMPT [None]
